FAERS Safety Report 8350903 (Version 4)
Quarter: 2016Q1

REPORT INFORMATION
  Report Type: Spontaneous
  Country: FR (occurrence: FR)
  Receive Date: 20120124
  Receipt Date: 20160104
  Transmission Date: 20160526
  Serious: Yes (Hospitalization)
  Sender: FDA-Public Use
  Company Number: FR-SANOFI-AVENTIS-2012SA002466

PATIENT
  Age: 87 Year
  Sex: Female

DRUGS (7)
  1. CLAFORAN [Suspect]
     Active Substance: CEFOTAXIME SODIUM
     Indication: PRODUCT USED FOR UNKNOWN INDICATION
     Route: 042
     Dates: start: 20111021, end: 20111024
  2. PYOSTACINE [Concomitant]
     Active Substance: PRISTINAMYCIN
     Dates: start: 20111007, end: 20111017
  3. GENTALLINE [Concomitant]
     Active Substance: GENTAMICIN SULFATE
     Dates: start: 20111019, end: 20111021
  4. ROCEPHINE [Concomitant]
     Active Substance: CEFTRIAXONE SODIUM
     Dates: start: 20111017, end: 20111018
  5. DALACIN [Suspect]
     Active Substance: CLINDAMYCIN\CLINDAMYCIN PHOSPHATE
     Indication: PRODUCT USED FOR UNKNOWN INDICATION
     Route: 042
     Dates: start: 20111017, end: 20111024
  6. RIFADINE [Suspect]
     Active Substance: RIFAMPIN
     Indication: PRODUCT USED FOR UNKNOWN INDICATION
     Route: 042
     Dates: start: 20111021, end: 20111024
  7. CLAMOXYL [Concomitant]
     Active Substance: AMOXICILLIN\CLAVULANIC ACID
     Dates: start: 20111018, end: 20111021

REACTIONS (3)
  - Eosinophilia [Recovered/Resolved]
  - Drug reaction with eosinophilia and systemic symptoms [Recovering/Resolving]
  - Rash [Recovered/Resolved]

NARRATIVE: CASE EVENT DATE: 20111023
